FAERS Safety Report 23527054 (Version 2)
Quarter: 2024Q1

REPORT INFORMATION
  Report Type: Spontaneous
  Country: US (occurrence: US)
  Receive Date: 20240215
  Receipt Date: 20240223
  Transmission Date: 20240410
  Serious: No
  Sender: FDA-Public Use
  Company Number: US-KARYOPHARM-2023KPT002285

PATIENT

DRUGS (2)
  1. XPOVIO [Suspect]
     Active Substance: SELINEXOR
     Indication: Plasma cell myeloma
     Dosage: 80 MG, WEEKLY ON DAYS 1 AND 3
     Route: 048
     Dates: start: 20231124, end: 202312
  2. XPOVIO [Suspect]
     Active Substance: SELINEXOR
     Dosage: 60 MG, 2X/WEEK
     Route: 048
     Dates: start: 202312

REACTIONS (7)
  - Insomnia [Unknown]
  - Dysgeusia [Not Recovered/Not Resolved]
  - Retching [Unknown]
  - Fatigue [Not Recovered/Not Resolved]
  - Anaemia [Unknown]
  - Weight decreased [Unknown]
  - Platelet count decreased [Unknown]

NARRATIVE: CASE EVENT DATE: 20230101
